FAERS Safety Report 8222366-7 (Version None)
Quarter: 2012Q1

REPORT INFORMATION
  Report Type: 
  Country: None (occurrence: None)
  Receive Date: 20120320
  Receipt Date: 20120315
  Transmission Date: 20120608
  Serious: Yes (Hospitalization, Other)
  Sender: FDA-Public Use
  Company Number: RU-BAYER-201032083GPV

PATIENT
  Age: 63 Year
  Sex: Male
  Weight: 72 kg

DRUGS (5)
  1. METOPROLOL TARTRATE [Concomitant]
     Indication: HYPERTENSION
     Dosage: 50 MG (DAILY DOSE), QD, ORAL
     Route: 048
     Dates: start: 20100701
  2. PREDUCTAL [Concomitant]
     Indication: HYPERTENSION
     Dosage: 35 MG (DAILY DOSE), QD, ORAL
     Route: 048
     Dates: start: 20100701
  3. MONOPRIL [Concomitant]
     Indication: HYPERTENSION
     Dosage: 20 MG (DAILY DOSE), QD, ORAL
     Route: 048
     Dates: start: 20100701
  4. SORAFENIB (RAF KINASE INHIBITOR) [Suspect]
     Indication: HEPATIC NEOPLASM MALIGNANT
     Dosage: 400 MG, BID
     Route: 048
     Dates: start: 20100628, end: 20100811
  5. ERLOTINIB HYDROCHLORIDE [Suspect]
     Indication: HEPATIC NEOPLASM MALIGNANT
     Dosage: 150 MG, QD
     Route: 048
     Dates: start: 20100628, end: 20100811

REACTIONS (1)
  - EXFOLIATIVE RASH [None]
